FAERS Safety Report 9574716 (Version 2)
Quarter: 2016Q2

REPORT INFORMATION
  Report Type: Spontaneous
  Country: CN (occurrence: CN)
  Receive Date: 20131001
  Receipt Date: 20160530
  Transmission Date: 20160815
  Serious: Yes (Other)
  Sender: FDA-Public Use
  Company Number: CN-JNJFOC-20130915667

PATIENT

DRUGS (1)
  1. SPORANOX [Suspect]
     Active Substance: ITRACONAZOLE
     Indication: PULMONARY MYCOSIS
     Route: 041

REACTIONS (9)
  - Gastrointestinal disorder [Unknown]
  - Renal impairment [Unknown]
  - Liver function test abnormal [Unknown]
  - Hypersensitivity [Unknown]
  - Hypokalaemia [Unknown]
  - Adverse reaction [Unknown]
  - Phlebitis [Unknown]
  - Drug ineffective [Unknown]
  - Pancytopenia [Unknown]
